FAERS Safety Report 4398197-5 (Version None)
Quarter: 2004Q3

REPORT INFORMATION
  Report Type: 
  Country: None (occurrence: None)
  Receive Date: 20040714
  Receipt Date: 20040714
  Transmission Date: 20050211
  Serious: Yes (Life-Threatening, Hospitalization)
  Sender: FDA-Public Use
  Company Number: None

PATIENT
  Sex: Female

DRUGS (2)
  1. NAFCILLIN SODIUM [Suspect]
     Indication: PNEUMONIA
     Dosage: 3 GRAMS Q6H INTRAVENOUS
     Route: 042
     Dates: start: 20040607, end: 20040618
  2. CEFAZOLIN [Suspect]
     Indication: PNEUMONIA
     Dosage: 1 GRAM Q12H INTRAVENOUS
     Route: 042
     Dates: start: 20040607, end: 20040618

REACTIONS (2)
  - RASH [None]
  - RENAL FAILURE ACUTE [None]
